FAERS Safety Report 9918231 (Version 2)
Quarter: 2014Q1

REPORT INFORMATION
  Report Type: Spontaneous
  Country: JP (occurrence: JP)
  Receive Date: 20140224
  Receipt Date: 20140320
  Transmission Date: 20141002
  Serious: Yes (Hospitalization)
  Sender: FDA-Public Use
  Company Number: JP-ROCHE-1352570

PATIENT
  Age: 80 Year
  Sex: Female
  Weight: 35 kg

DRUGS (5)
  1. ACTEMRA [Suspect]
     Indication: RHEUMATOID ARTHRITIS
     Route: 058
     Dates: start: 20140107, end: 20140121
  2. PREDONINE [Concomitant]
     Indication: RHEUMATOID ARTHRITIS
     Dosage: 5MG-10MG
     Route: 048
     Dates: start: 20110425
  3. AZULFIDINE-EN [Concomitant]
     Indication: RHEUMATOID ARTHRITIS
     Route: 048
     Dates: start: 20100209
  4. JANUVIA [Concomitant]
     Indication: DIABETES MELLITUS
     Route: 048
     Dates: start: 20120904
  5. ELCITONIN [Concomitant]
     Indication: OSTEOPOROSIS
     Route: 065
     Dates: start: 20131224

REACTIONS (1)
  - Anaemia [Unknown]
